FAERS Safety Report 10768565 (Version 1)
Quarter: 2015Q1

REPORT INFORMATION
  Report Type: Spontaneous
  Country: US (occurrence: None)
  Receive Date: 20150205
  Receipt Date: 20150205
  Transmission Date: 20150721
  Serious: Yes (Death, Hospitalization)
  Sender: FDA-Public Use
  Company Number: None

PATIENT
  Age: 80 Year
  Sex: Male
  Weight: 94 kg

DRUGS (2)
  1. ASPIRIN 81 MG [Suspect]
     Active Substance: ASPIRIN
     Indication: ATRIAL FIBRILLATION
     Dosage: AT LEAST SINCE BEGINNING OF 2010?1 TABLET QD PO
     Route: 048
     Dates: start: 2010
  2. WARFARIN 2.5 MG [Suspect]
     Active Substance: WARFARIN
     Indication: ATRIAL FIBRILLATION
     Dosage: SINCE AT LEAST BEGINNING OF 2010?1 TABLET QD PO
     Route: 048
     Dates: start: 2010

REACTIONS (8)
  - Hypotension [None]
  - Bradycardia [None]
  - Myocardial ischaemia [None]
  - Duodenal ulcer [None]
  - Unresponsive to stimuli [None]
  - Rectal haemorrhage [None]
  - Cardio-respiratory arrest [None]
  - Anaemia [None]

NARRATIVE: CASE EVENT DATE: 20140311
